FAERS Safety Report 10365874 (Version 1)
Quarter: 2014Q1

REPORT INFORMATION
  Report Type: Spontaneous
  Country: US (occurrence: None)
  Receive Date: 20140306
  Receipt Date: 20140306
  Transmission Date: 20141002
  Serious: Yes (Hospitalization)
  Sender: FDA-Public Use
  Company Number: 163-21880-13092091

PATIENT
  Age: 82 Year
  Sex: Male

DRUGS (2)
  1. REVLIMID (LENALIDOMIDE) (10 MILLIGRAM, CAPSULES) [Suspect]
     Indication: MYELOFIBROSIS
     Dosage: 10 MG, 21 IN 28 D
     Route: 048
     Dates: start: 20130816
  2. ASA (ACETYLSACLICYLIC ACID) [Concomitant]

REACTIONS (1)
  - Cardiac failure [None]
